FAERS Safety Report 18555722 (Version 5)
Quarter: 2024Q1

REPORT INFORMATION
  Report Type: Spontaneous
  Country: US (occurrence: US)
  Receive Date: 20201127
  Receipt Date: 20240122
  Transmission Date: 20240409
  Serious: No
  Sender: FDA-Public Use
  Company Number: US-PFIZER INC-2020468865

PATIENT
  Age: 67 Year

DRUGS (6)
  1. PREMARIN [Suspect]
     Active Substance: ESTROGENS, CONJUGATED
     Dosage: 0.3 MG, 1X/DAY
     Route: 048
  2. PREMARIN [Suspect]
     Active Substance: ESTROGENS, CONJUGATED
     Dosage: HALF OF TABLET
  3. PREMARIN [Suspect]
     Active Substance: ESTROGENS, CONJUGATED
     Dosage: 0.15 MG, DAILY
     Route: 048
  4. NEURONTIN [Concomitant]
     Active Substance: GABAPENTIN
     Dosage: 600 MG, 3X/DAY
  5. NEURONTIN [Concomitant]
     Active Substance: GABAPENTIN
     Dosage: 300 IN AM AND 900 AT BEDTIME
  6. NITROSTAT [Concomitant]
     Active Substance: NITROGLYCERIN
     Indication: Chest pain
     Dosage: PLACE 1 TABLET (0.4 MG TOTAL) UNDER THE TONGUE EVERY 5 (FIVE) MINUTES AS NEEDED
     Route: 060

REACTIONS (3)
  - Arthritis [Unknown]
  - Hot flush [Unknown]
  - Intentional product use issue [Unknown]
